FAERS Safety Report 21502826 (Version 1)
Quarter: 2022Q4

REPORT INFORMATION
  Report Type: Spontaneous
  Country: US (occurrence: US)
  Receive Date: 20221025
  Receipt Date: 20221025
  Transmission Date: 20230113
  Serious: Yes (Other)
  Sender: FDA-Public Use
  Company Number: US-BAYER-2022A142322

PATIENT
  Age: 74 Year
  Sex: Female

DRUGS (4)
  1. GENUINE BAYER ASPIRIN [Suspect]
     Active Substance: ASPIRIN
  2. NIFEDIPINE [Concomitant]
     Active Substance: NIFEDIPINE
  3. IRBESARTAN [Concomitant]
     Active Substance: IRBESARTAN
  4. TALAZOPARIB [Concomitant]
     Active Substance: TALAZOPARIB

REACTIONS (1)
  - Gastrointestinal haemorrhage [Recovered/Resolved]
